FAERS Safety Report 6452373-6 (Version None)
Quarter: 2009Q4

REPORT INFORMATION
  Report Type: 
  Country: None (occurrence: None)
  Receive Date: 20091123
  Receipt Date: 20091119
  Transmission Date: 20100525
  Serious: Yes (Hospitalization)
  Sender: FDA-Public Use
  Company Number: FR-MERCK-0909FRA00001

PATIENT
  Age: 68 Year
  Sex: Male

DRUGS (8)
  1. ZETIA [Suspect]
     Route: 048
  2. SITAGLIPTIN PHOSPHATE [Suspect]
     Indication: TYPE 2 DIABETES MELLITUS
     Route: 048
  3. BCG VACCINE [Suspect]
     Indication: BLADDER CANCER
     Route: 051
     Dates: start: 20090201, end: 20090618
  4. METFORMIN HCL [Suspect]
     Indication: TYPE 2 DIABETES MELLITUS
     Route: 048
  5. GLYBURIDE [Suspect]
     Indication: TYPE 2 DIABETES MELLITUS
     Route: 048
  6. ROSIGLITAZONE MALEATE [Suspect]
     Indication: TYPE 2 DIABETES MELLITUS
     Route: 048
  7. PERINDOPRIL [Suspect]
     Route: 048
  8. BISOPROLOL FUMARATE [Suspect]
     Route: 048

REACTIONS (1)
  - GRANULOMATOUS LIVER DISEASE [None]
